FAERS Safety Report 18411423 (Version 1)
Quarter: 2020Q4

REPORT INFORMATION
  Report Type: Spontaneous
  Country: NL (occurrence: DE)
  Receive Date: 20201021
  Receipt Date: 20201021
  Transmission Date: 20210114
  Serious: Yes (Other)
  Sender: FDA-Public Use
  Company Number: DE-FRESENIUS KABI-FK202010882

PATIENT
  Age: 70 Year
  Sex: Male
  Weight: 100 kg

DRUGS (6)
  1. FLUOROURACIL. [Concomitant]
     Active Substance: FLUOROURACIL
     Dosage: LAST ADMINISTRATION BEFORE ONSET: 22-JUN-2020
     Route: 042
     Dates: start: 20200218
  2. FOLATE SODIUM [Concomitant]
     Active Substance: FOLATE SODIUM
     Indication: ADENOCARCINOMA OF COLON
     Dosage: LAST ADMINISTRATION BEFORE ONSET: 22-JUN-2020
     Route: 042
     Dates: start: 20200218, end: 20200722
  3. OXALIPLATIN (MANUFACTURER UNKNOWN) [Suspect]
     Active Substance: OXALIPLATIN
     Indication: ADENOCARCINOMA OF COLON
     Dosage: LAST ADMINISTRATION BEFORE ONSET: 22-JUN-2020
     Route: 042
     Dates: start: 20200218
  4. GRANISETRON [Concomitant]
     Active Substance: GRANISETRON
     Indication: PREMEDICATION
     Dosage: BEFORE CHEMOTHERAPY
     Route: 065
  5. FOSAPREPITANT MEGLUMINE [Concomitant]
     Active Substance: FOSAPREPITANT
     Indication: PREMEDICATION
     Dosage: BEFORE CHEMOTHERAPY
     Route: 065
  6. FLUOROURACIL. [Concomitant]
     Active Substance: FLUOROURACIL
     Indication: ADENOCARCINOMA OF COLON
     Dosage: LAST ADMINISTRATION BEFORE ONSET: 22-JUN-2020
     Route: 042
     Dates: start: 20200218

REACTIONS (1)
  - Thrombotic thrombocytopenic purpura [Recovered/Resolved]

NARRATIVE: CASE EVENT DATE: 20200706
